FAERS Safety Report 6525570-9 (Version None)
Quarter: 2010Q1

REPORT INFORMATION
  Report Type: 
  Country: None (occurrence: None)
  Receive Date: 20100104
  Receipt Date: 20091221
  Transmission Date: 20100710
  Serious: Yes (Other)
  Sender: FDA-Public Use
  Company Number: BE-PFIZER INC-2009296570

PATIENT
  Age: 39 Year
  Sex: Female

DRUGS (1)
  1. SALAZOPYRIN [Suspect]
     Indication: RHEUMATOID ARTHRITIS
     Dosage: 1000 MG, 2X/DAY
     Route: 048
     Dates: start: 20090921, end: 20091030

REACTIONS (5)
  - GASTROENTERITIS [None]
  - GENERAL PHYSICAL CONDITION ABNORMAL [None]
  - HEPATITIS TOXIC [None]
  - PRURITUS [None]
  - RASH ERYTHEMATOUS [None]
